FAERS Safety Report 21200454 (Version 1)
Quarter: 2022Q3

REPORT INFORMATION
  Report Type: Spontaneous
  Country: US (occurrence: None)
  Receive Date: 20220810
  Receipt Date: 20220810
  Transmission Date: 20221027
  Serious: Yes (Death)
  Sender: FDA-Public Use
  Company Number: None

PATIENT
  Sex: Female

DRUGS (3)
  1. CAPECITABINE [Suspect]
     Active Substance: CAPECITABINE
     Indication: Metastasis
     Dosage: TAKE 3 TABLETS (1500 MG) BY MOUTH EVERY MORNING AND 3 TABLETS (1500MG) BY MOUTH EVERY NIGHT AT BEDTI
     Route: 048
     Dates: start: 20220708
  2. COVID-19 [Concomitant]
  3. EVEROLIMUS [Concomitant]
     Active Substance: EVEROLIMUS

REACTIONS (1)
  - Death [None]
